FAERS Safety Report 5574146-9 (Version None)
Quarter: 2007Q4

REPORT INFORMATION
  Report Type: 
  Country: None (occurrence: None)
  Receive Date: 20071221
  Receipt Date: 20071217
  Transmission Date: 20080405
  Serious: Yes (Disabling)
  Sender: FDA-Public Use
  Company Number: 2007S1000848

PATIENT
  Sex: Male

DRUGS (1)
  1. BRETHINE [Suspect]

REACTIONS (13)
  - ABNORMAL BEHAVIOUR [None]
  - ACTIVITIES OF DAILY LIVING IMPAIRED [None]
  - APHASIA [None]
  - CONVULSION [None]
  - DEVELOPMENTAL DELAY [None]
  - DRUG EXPOSURE DURING PREGNANCY [None]
  - EXPRESSIVE LANGUAGE DISORDER [None]
  - INJURY [None]
  - LEARNING DISABILITY [None]
  - MOTOR DYSFUNCTION [None]
  - NERVOUS SYSTEM DISORDER [None]
  - PAIN [None]
  - PSYCHOMOTOR HYPERACTIVITY [None]
